FAERS Safety Report 16474441 (Version 1)
Quarter: 2019Q2

REPORT INFORMATION
  Report Type: Spontaneous
  Country: US (occurrence: US)
  Receive Date: 20190515
  Receipt Date: 20190515
  Transmission Date: 20190711
  Serious: Yes (Hospitalization)
  Sender: FDA-Public Use
  Company Number: None

PATIENT
  Age: 57 Year
  Sex: Female
  Weight: 75.1 kg

DRUGS (8)
  1. APIXABAN (2.5MG OR 5.0MG) [Suspect]
     Active Substance: APIXABAN
  2. LETROZOLE. [Concomitant]
     Active Substance: LETROZOLE
  3. APIXABAN (2.5MG OR 5.0MG) [Suspect]
     Active Substance: APIXABAN
     Indication: VENOUS OCCLUSION
     Route: 048
     Dates: start: 20180823, end: 20190513
  4. GEMCITABINE [Concomitant]
     Active Substance: GEMCITABINE\GEMCITABINE HYDROCHLORIDE
  5. DECADRON [Concomitant]
     Active Substance: DEXAMETHASONE
  6. APIXABAN (2.5MG OR 5.0MG) [Suspect]
     Active Substance: APIXABAN
     Indication: DEEP VEIN THROMBOSIS
     Route: 048
     Dates: start: 20180823, end: 20190513
  7. CARBOPLATIN. [Concomitant]
     Active Substance: CARBOPLATIN
  8. LYRICA [Suspect]
     Active Substance: PREGABALIN

REACTIONS (9)
  - Confusional state [None]
  - Disturbance in attention [None]
  - Delirium [None]
  - Mental status changes [None]
  - Nausea [None]
  - Abnormal behaviour [None]
  - Unresponsive to stimuli [None]
  - Headache [None]
  - Mouth haemorrhage [None]

NARRATIVE: CASE EVENT DATE: 20190513
